FAERS Safety Report 13150614 (Version 3)
Quarter: 2017Q1

REPORT INFORMATION
  Report Type: Spontaneous
  Country: NO (occurrence: NO)
  Receive Date: 20170125
  Receipt Date: 20170315
  Transmission Date: 20170428
  Serious: Yes (Hospitalization)
  Sender: FDA-Public Use
  Company Number: NO-ACTELION-A-CH2017-148492

PATIENT
  Age: 74 Year
  Sex: Male

DRUGS (2)
  1. UPTRAVI [Suspect]
     Active Substance: SELEXIPAG
     Indication: PULMONARY ARTERIAL HYPERTENSION
     Dosage: 1200 ?G, BID
     Route: 048
     Dates: end: 20170221
  2. UPTRAVI [Suspect]
     Active Substance: SELEXIPAG
     Dosage: 1000 ?G, BID
     Route: 048
     Dates: start: 20170222

REACTIONS (2)
  - Hypotension [Recovered/Resolved]
  - Influenza like illness [Recovered/Resolved]

NARRATIVE: CASE EVENT DATE: 201701
